FAERS Safety Report 6983722-8 (Version None)
Quarter: 2010Q3

REPORT INFORMATION
  Report Type: 
  Country: None (occurrence: None)
  Receive Date: 20100914
  Receipt Date: 20081208
  Transmission Date: 20110219
  Serious: No
  Sender: FDA-Public Use
  Company Number: US-WYE-H07120408

PATIENT
  Age: 31 Year
  Sex: Male
  Weight: 90.8 kg

DRUGS (2)
  1. ADVIL LIQUI-GELS [Suspect]
     Indication: HEADACHE
     Dosage: 3 TABLETS X 1
     Route: 048
     Dates: start: 20081208, end: 20081208
  2. ADVIL LIQUI-GELS [Suspect]
     Dosage: UNKNOWN
     Route: 048

REACTIONS (5)
  - EYE SWELLING [None]
  - INCORRECT DOSE ADMINISTERED [None]
  - LIP SWELLING [None]
  - OEDEMA PERIPHERAL [None]
  - RASH PRURITIC [None]
